FAERS Safety Report 4865821-X (Version None)
Quarter: 2005Q4

REPORT INFORMATION
  Report Type: 
  Country: None (occurrence: None)
  Receive Date: 20051223
  Receipt Date: 20051111
  Transmission Date: 20060501
  Serious: Yes (Hospitalization, Other)
  Sender: FDA-Public Use
  Company Number: PHNU2005DE03740

PATIENT
  Age: 69 Year
  Sex: Male

DRUGS (10)
  1. ZOMETA [Suspect]
     Indication: MULTIPLE MYELOMA
     Dosage: 4 MG, QMO
     Route: 042
     Dates: start: 20020801
  2. CORTISONE ACETATE TAB [Concomitant]
     Route: 065
  3. CHEMOTHERAPEUTICS,OTHER [Concomitant]
     Route: 065
  4. VELCADE [Suspect]
     Indication: MULTIPLE MYELOMA
     Dosage: 2 MG, UNK
     Route: 065
     Dates: start: 20050801
  5. DEXAMETHASONE [Suspect]
     Indication: MULTIPLE MYELOMA
     Dosage: 20 MG, QW2
     Route: 065
     Dates: start: 20050801
  6. ERYPO [Concomitant]
     Indication: ANAEMIA OF MALIGNANT DISEASE
     Dosage: 40000 IU, UNK
     Route: 065
     Dates: start: 20050801
  7. CONCOR [Concomitant]
     Indication: HYPERTENSION
     Dosage: 5 MG, QD
     Route: 065
  8. ACERBON ^ZENECA^ [Concomitant]
     Indication: HYPERTENSION
     Dosage: 20 MG, QD
     Route: 065
  9. ACYCLOVIR [Concomitant]
     Indication: PROPHYLAXIS
     Dosage: 200 MG, TID
     Route: 065
     Dates: start: 20050801
  10. COTRIM DS [Concomitant]
     Indication: PROPHYLAXIS
     Dosage: UNK, QW2
     Route: 065
     Dates: start: 20040201

REACTIONS (9)
  - BONE DISORDER [None]
  - JAW OPERATION [None]
  - OSTEITIS [None]
  - OSTEOMYELITIS [None]
  - OSTEONECROSIS [None]
  - PLASTIC SURGERY [None]
  - PRIMARY SEQUESTRUM [None]
  - SEQUESTRECTOMY [None]
  - TOOTH EXTRACTION [None]
